FAERS Safety Report 18463919 (Version 1)
Quarter: 2020Q4

REPORT INFORMATION
  Report Type: Spontaneous
  Country: MA (occurrence: MA)
  Receive Date: 20201104
  Receipt Date: 20201104
  Transmission Date: 20210114
  Serious: Yes (Hospitalization, Other)
  Sender: FDA-Public Use
  Company Number: MA-009507513-2011MAR000364

PATIENT
  Age: 59 Year

DRUGS (2)
  1. PEMBROLIZUMAB. [Suspect]
     Active Substance: PEMBROLIZUMAB
     Indication: MALIGNANT MELANOMA
  2. PEMBROLIZUMAB. [Suspect]
     Active Substance: PEMBROLIZUMAB
     Indication: METASTATIC MALIGNANT MELANOMA
     Dosage: UNK

REACTIONS (10)
  - Fatigue [Unknown]
  - Constipation [Unknown]
  - Decreased appetite [Unknown]
  - Condition aggravated [Unknown]
  - Malnutrition [Unknown]
  - Weight decreased [Unknown]
  - Tumour pseudoprogression [Unknown]
  - Asthenia [Unknown]
  - Taste disorder [Unknown]
  - Anaemia [Unknown]
